FAERS Safety Report 9691824 (Version 1)
Quarter: 2013Q4

REPORT INFORMATION
  Report Type: Spontaneous
  Country: BR (occurrence: BR)
  Receive Date: 20131115
  Receipt Date: 20131115
  Transmission Date: 20140711
  Serious: Yes (Hospitalization)
  Sender: FDA-Public Use
  Company Number: BR-ASTRAZENECA-2013SE82876

PATIENT
  Age: 889 Month
  Sex: Male
  Weight: 110 kg

DRUGS (4)
  1. CRESTOR [Suspect]
     Indication: BLOOD CHOLESTEROL ABNORMAL
     Route: 048
     Dates: start: 201309
  2. LEXAPRO [Concomitant]
  3. SUSTRATE [Concomitant]
  4. JANUVIA [Concomitant]
     Indication: DIABETES MELLITUS

REACTIONS (1)
  - Coronary artery occlusion [Recovering/Resolving]
